FAERS Safety Report 19028447 (Version 2)
Quarter: 2021Q2

REPORT INFORMATION
  Report Type: Report from Study
  Country: JP (occurrence: JP)
  Receive Date: 20210319
  Receipt Date: 20210414
  Transmission Date: 20210717
  Serious: Yes (Other)
  Sender: FDA-Public Use
  Company Number: JP-ALXN-A202103183

PATIENT
  Age: 4 Decade
  Sex: Female

DRUGS (4)
  1. PROGRAF [Concomitant]
     Active Substance: TACROLIMUS
     Indication: MYASTHENIA GRAVIS
     Dosage: 3 MG, QD
     Route: 048
     Dates: start: 20171206
  2. PREDNISOLONE. [Concomitant]
     Active Substance: PREDNISOLONE
     Indication: MYASTHENIA GRAVIS
     Dosage: 7.5 MG, DAILY
     Route: 065
  3. SOLIRIS [Suspect]
     Active Substance: ECULIZUMAB
     Indication: MYASTHENIA GRAVIS
     Dosage: 1200 MG, Q2W
     Route: 042
     Dates: start: 20181207
  4. PREDNISOLONE. [Concomitant]
     Active Substance: PREDNISOLONE
     Indication: THYMOMA
     Dosage: 15 MG, QD
     Route: 065

REACTIONS (1)
  - Thymoma [Not Recovered/Not Resolved]

NARRATIVE: CASE EVENT DATE: 202010
